FAERS Safety Report 5934350-4 (Version None)
Quarter: 2008Q4

REPORT INFORMATION
  Report Type: 
  Country: None (occurrence: None)
  Receive Date: 20081029
  Receipt Date: 20081021
  Transmission Date: 20090506
  Serious: Yes (Other)
  Sender: FDA-Public Use
  Company Number: PHEH2008US09499

PATIENT
  Age: 56 Year
  Sex: Male

DRUGS (10)
  1. GLEEVEC [Suspect]
     Indication: CHRONIC MYELOID LEUKAEMIA
     Dosage: 400 MG, QD
     Route: 048
     Dates: start: 20060801
  2. POTASSIUM CHLORIDE [Concomitant]
  3. BENAZEPRIL HYDROCHLORIDE [Concomitant]
  4. TOPAMAX [Concomitant]
  5. MIRAPEX [Concomitant]
  6. CARBIDOPA AND LEVODOPA [Concomitant]
  7. ASPIRIN [Concomitant]
  8. BUMETANIDE [Concomitant]
  9. VITAMINS NOS [Concomitant]
  10. ARAVA [Concomitant]

REACTIONS (2)
  - RETINAL DETACHMENT [None]
  - RETINAL TEAR [None]
